FAERS Safety Report 5367116-7 (Version None)
Quarter: 2007Q2

REPORT INFORMATION
  Report Type: 
  Country: None (occurrence: None)
  Receive Date: 20070622
  Receipt Date: 20060712
  Transmission Date: 20071010
  Serious: Yes (Life-Threatening, Other)
  Sender: FDA-Public Use
  Company Number: US-BRISTOL-MYERS SQUIBB COMPANY-13412754

PATIENT
  Age: 72 Year
  Sex: Male
  Weight: 86 kg

DRUGS (5)
  1. SINEMET [Suspect]
     Indication: PARKINSON'S DISEASE
     Route: 048
     Dates: start: 20020101
  2. ZOCOR [Concomitant]
  3. MULTI-VITAMIN [Concomitant]
  4. VITAMIN E [Concomitant]
  5. ASPIRIN [Concomitant]

REACTIONS (1)
  - MALIGNANT MELANOMA [None]
